FAERS Safety Report 8090813-X (Version None)
Quarter: 2012Q1

REPORT INFORMATION
  Report Type: 
  Country: None (occurrence: None)
  Receive Date: 20120125
  Receipt Date: 20120111
  Transmission Date: 20120608
  Serious: Yes (Hospitalization)
  Sender: FDA-Public Use
  Company Number: JP-2012-10235

PATIENT
  Age: 62 Year
  Sex: Male

DRUGS (28)
  1. LASIX [Concomitant]
  2. DOBUPUM (DOBUTAMINE HYDROCHLORIDE) [Concomitant]
  3. SAMSCA [Suspect]
     Indication: CARDIAC FAILURE
     Dosage: 7.5; 15 MG MILLIGRAMS, QD, ORAL
     Route: 048
     Dates: start: 20111230, end: 20120106
  4. SAMSCA [Suspect]
     Indication: CARDIAC FAILURE
     Dosage: 7.5; 15 MG MILLIGRAMS, QD, ORAL
     Route: 048
     Dates: start: 20111222, end: 20111229
  5. FAMOTIDINE [Concomitant]
  6. VITAJECT (MULTIPLE VITAMIN FOR TOTAL PARENTERAL NUTRITION) [Concomitant]
  7. MAGMITT (MAGNESIUM OXYDE) [Concomitant]
  8. KAKODIN (DOPAMINE HYDROCHLORIDE) [Concomitant]
  9. MILRILA (MILRINONE) [Concomitant]
  10. AMIODARONE HCL [Concomitant]
  11. BIOFERMIN (LACTOMIN) [Concomitant]
  12. ZETIA [Concomitant]
  13. DOBUTREX [Concomitant]
  14. CARVEDILOL [Concomitant]
  15. ALDACTONE [Concomitant]
  16. PERINDOPRIL ERBUMINE [Concomitant]
  17. HEPARIN NA LOCK (HEPARIN SODIUM) [Concomitant]
  18. ASPIRIN [Concomitant]
  19. MAINTATE (BI9SOPROLOL FUMARATE) [Concomitant]
  20. SOLDEM 6 (POSTOPERATIVE RECOVERY MEDIUM) [Concomitant]
  21. NOVO HEPARIN (HEPARIN SODIUM) [Concomitant]
  22. LIVALO [Concomitant]
  23. INTRALIPOS (GLUCINE MAX SEED OIL) [Concomitant]
  24. ARGAMATE (CALCIUM POLYSTYRENE SULFONATE) [Concomitant]
  25. PLAVIX [Concomitant]
  26. VOLVIX (MANGANESE CHLORIDE_ZINC SULFATE HYDRATE COMBINED DRUG) INJECTI [Concomitant]
  27. LANSOPRAZOLE [Concomitant]
  28. DEXTROSE 5% [Concomitant]

REACTIONS (1)
  - HYPERNATRAEMIA [None]
